FAERS Safety Report 9918109 (Version 1)
Quarter: 2014Q1

REPORT INFORMATION
  Report Type: Spontaneous
  Country: US (occurrence: US)
  Receive Date: 20140223
  Receipt Date: 20140223
  Transmission Date: 20141002
  Serious: No
  Sender: FDA-Public Use
  Company Number: US-ALLERGAN-1304978US

PATIENT
  Age: 17 Year
  Sex: Female

DRUGS (1)
  1. TAZORAC CREAM 0.05% [Suspect]
     Indication: PRODUCT USED FOR UNKNOWN INDICATION
     Dosage: UNK, SINGLE
     Route: 061

REACTIONS (3)
  - Stomatitis [Unknown]
  - Urticaria [Unknown]
  - Skin irritation [Unknown]
